FAERS Safety Report 7452046-7 (Version None)
Quarter: 2011Q2

REPORT INFORMATION
  Report Type: 
  Country: None (occurrence: None)
  Receive Date: 20110425
  Receipt Date: 20110411
  Transmission Date: 20111010
  Serious: Yes (Other)
  Sender: FDA-Public Use
  Company Number: 030997

PATIENT
  Sex: Female
  Weight: 60 kg

DRUGS (2)
  1. CIMZIA [Suspect]
     Indication: RHEUMATOID ARTHRITIS
     Dosage: (400 MG , NBR OF DOSES RECIEVED: 3 SUBCUTANEOUS), (200 MG, NBR OF DOSES RECIEVED: 4 SUBCUTANEOUS)
     Route: 058
     Dates: start: 20110110, end: 20110110
  2. CIMZIA [Suspect]
     Indication: RHEUMATOID ARTHRITIS
     Dosage: (400 MG , NBR OF DOSES RECIEVED: 3 SUBCUTANEOUS), (200 MG, NBR OF DOSES RECIEVED: 4 SUBCUTANEOUS)
     Route: 058
     Dates: start: 20110221

REACTIONS (1)
  - LEFT VENTRICULAR DYSFUNCTION [None]
